FAERS Safety Report 12844500 (Version 1)
Quarter: 2016Q4

REPORT INFORMATION
  Report Type: Spontaneous
  Country: US (occurrence: US)
  Receive Date: 20161013
  Receipt Date: 20161013
  Transmission Date: 20170207
  Serious: No
  Sender: FDA-Public Use
  Company Number: US-ROCHE-1739990

PATIENT
  Sex: Male

DRUGS (2)
  1. OFEV [Concomitant]
     Active Substance: NINTEDANIB
     Route: 065
     Dates: start: 201502
  2. ESBRIET [Suspect]
     Active Substance: PIRFENIDONE
     Indication: IDIOPATHIC PULMONARY FIBROSIS
     Route: 048
     Dates: start: 201408

REACTIONS (4)
  - Decreased appetite [Unknown]
  - Influenza [Recovered/Resolved]
  - Malaise [Unknown]
  - Asthenia [Unknown]
